FAERS Safety Report 4401091-4 (Version None)
Quarter: 2004Q3

REPORT INFORMATION
  Report Type: 
  Country: None (occurrence: None)
  Receive Date: 20040907
  Receipt Date: 20031027
  Transmission Date: 20050211
  Serious: Yes (Other)
  Sender: FDA-Public Use
  Company Number: US-BRISTOL-MYERS SQUIBB COMPANY-12419248

PATIENT
  Age: 8 Year
  Sex: Male

DRUGS (1)
  1. WARFARIN SODIUM [Suspect]

REACTIONS (3)
  - DRUG INEFFECTIVE [None]
  - HEPATOMEGALY [None]
  - VENA CAVA THROMBOSIS [None]
